FAERS Safety Report 9994897 (Version 1)
Quarter: 2014Q1

REPORT INFORMATION
  Report Type: Spontaneous
  Country: US (occurrence: None)
  Receive Date: 20140307
  Receipt Date: 20140307
  Transmission Date: 20141002
  Serious: No
  Sender: FDA-Public Use
  Company Number: None

PATIENT
  Age: 59 Year
  Sex: Female
  Weight: 74.84 kg

DRUGS (1)
  1. FORADIL [Suspect]
     Indication: CHRONIC OBSTRUCTIVE PULMONARY DISEASE
     Dosage: 1 CAPSULE  TWICE DAILY  INHALATION
     Route: 055
     Dates: start: 20140214, end: 20140303

REACTIONS (4)
  - Pharyngitis [None]
  - Muscle spasms [None]
  - Sputum increased [None]
  - Dry mouth [None]
